FAERS Safety Report 6687312-6 (Version None)
Quarter: 2010Q2

REPORT INFORMATION
  Report Type: 
  Country: None (occurrence: None)
  Receive Date: 20100419
  Receipt Date: 20100406
  Transmission Date: 20101027
  Serious: Yes (Other)
  Sender: FDA-Public Use
  Company Number: GB-AMGEN-US404492

PATIENT
  Sex: Female

DRUGS (9)
  1. ENBREL [Suspect]
     Indication: DRUG USE FOR UNKNOWN INDICATION
     Dosage: 25 MG (FREQUENCY UNSPECIFIED)
     Route: 058
     Dates: start: 20090401
  2. BISOPROLOL [Concomitant]
     Dosage: UNKNOWN
     Route: 065
  3. PREDNISOLONE [Concomitant]
     Dosage: UNKNOWN
     Route: 065
  4. FOLIC ACID [Concomitant]
     Dosage: UNKNOWN
     Route: 065
  5. ASPIRIN [Concomitant]
     Dosage: UNKNOWN
     Route: 065
  6. SIMVASTATIN [Concomitant]
     Dosage: UNKNOWN
     Route: 065
  7. METHOTREXATE [Concomitant]
     Dosage: UNKNOWN
     Route: 065
     Dates: start: 20100301
  8. PERINDOPRIL [Concomitant]
     Dosage: UNKNOWN
     Route: 065
  9. HYDROXYCHLOROQUINE SULFATE [Concomitant]
     Dosage: UNKNOWN
     Route: 065

REACTIONS (4)
  - CONSTIPATION [None]
  - CROHN'S DISEASE [None]
  - NERVOUSNESS [None]
  - PANIC ATTACK [None]
